FAERS Safety Report 21184704 (Version 1)
Quarter: 2022Q3

REPORT INFORMATION
  Report Type: Report from Study
  Country: CA (occurrence: CA)
  Receive Date: 20220808
  Receipt Date: 20220808
  Transmission Date: 20221027
  Serious: Yes (Other)
  Sender: FDA-Public Use
  Company Number: None

PATIENT
  Age: 60 Year
  Sex: Female

DRUGS (5)
  1. FULVESTRANT [Suspect]
     Active Substance: FULVESTRANT
     Indication: Breast cancer metastatic
     Route: 048
  2. PACLITAXEL [Suspect]
     Active Substance: PACLITAXEL
     Indication: Product used for unknown indication
     Dosage: LIQUID INTRAVENOUS
     Route: 065
  3. ZOLEDRONIC ACID [Suspect]
     Active Substance: ZOLEDRONIC ACID
     Indication: Product used for unknown indication
     Route: 065
  4. ALPELISIB [Suspect]
     Active Substance: ALPELISIB
     Indication: PIK3CA-activated mutation
     Route: 048
  5. ALPELISIB [Suspect]
     Active Substance: ALPELISIB
     Indication: PIK3CA-activated mutation
     Dosage: 2 EVERY 1 DAYS
     Route: 048

REACTIONS (6)
  - Central nervous system lesion [Unknown]
  - Diverticulum intestinal [Unknown]
  - Hepatic lesion [Unknown]
  - Lymphadenopathy [Unknown]
  - Metastases to bone [Unknown]
  - Pulmonary mass [Unknown]
